FAERS Safety Report 8338467-9 (Version None)
Quarter: 2012Q2

REPORT INFORMATION
  Report Type: 
  Country: None (occurrence: None)
  Receive Date: 20120504
  Receipt Date: 20120502
  Transmission Date: 20120825
  Serious: Yes (Hospitalization, Other)
  Sender: FDA-Public Use
  Company Number: US-PFIZER INC-2012108209

PATIENT
  Sex: Male

DRUGS (2)
  1. ALAVERT [Suspect]
     Indication: ALLERGIC SINUSITIS
     Dosage: 10 MG, 1X/DAY
     Route: 048
     Dates: start: 20120416, end: 20120401
  2. ALAVERT [Suspect]
     Indication: HEADACHE
     Dosage: 10 MG, 1X/DAY
     Route: 048
     Dates: start: 20120401, end: 20120502

REACTIONS (1)
  - HAEMORRHAGE [None]
